FAERS Safety Report 9735566 (Version 1)
Quarter: 2013Q4

REPORT INFORMATION
  Report Type: Spontaneous
  Country: US (occurrence: US)
  Receive Date: 20131206
  Receipt Date: 20131206
  Transmission Date: 20140711
  Serious: No
  Sender: FDA-Public Use
  Company Number: US-GILEAD-2009-0023940

PATIENT
  Sex: Female
  Weight: 97.52 kg

DRUGS (15)
  1. LETAIRIS [Suspect]
     Indication: PULMONARY ARTERIAL HYPERTENSION
     Route: 048
  2. LETAIRIS [Suspect]
     Route: 048
     Dates: start: 20090507
  3. HYDROCHLOROTHIZIDE [Concomitant]
  4. SIMVASTATIN [Concomitant]
  5. AMITIZA [Concomitant]
  6. RAMIPRIL [Concomitant]
  7. CLONAZEPAM [Concomitant]
  8. CELEBREX [Concomitant]
  9. PREVACID [Concomitant]
  10. ZOFRAN [Concomitant]
  11. FLUOXETINE [Concomitant]
  12. ASPIRIN [Concomitant]
  13. ECK SENNA [Concomitant]
  14. CALCIUM/VITAMIN D [Concomitant]
  15. GLUCOSAMINE [Concomitant]

REACTIONS (2)
  - Nasal congestion [Unknown]
  - Local swelling [Unknown]
